FAERS Safety Report 4789154-5 (Version None)
Quarter: 2005Q4

REPORT INFORMATION
  Report Type: 
  Country: None (occurrence: None)
  Receive Date: 20051003
  Receipt Date: 20050822
  Transmission Date: 20060501
  Serious: No
  Sender: FDA-Public Use
  Company Number: SU-2005-003943

PATIENT
  Age: 57 Year
  Sex: Male
  Weight: 77.1115 kg

DRUGS (4)
  1. BENICAR HCT [Suspect]
     Indication: HYPERTENSION
     Dosage: 40.25 MG QD PO
     Route: 048
     Dates: start: 20050701
  2. VASOTEC [Concomitant]
  3. INSULIN [Concomitant]
  4. ASPIRIN [Concomitant]

REACTIONS (1)
  - BLOOD GLUCOSE FLUCTUATION [None]
